FAERS Safety Report 21931496 (Version 3)
Quarter: 2023Q1

REPORT INFORMATION
  Report Type: Spontaneous
  Country: US (occurrence: US)
  Receive Date: 20230131
  Receipt Date: 20230228
  Transmission Date: 20230418
  Serious: No
  Sender: FDA-Public Use
  Company Number: US-PFIZER INC-2020172317

PATIENT
  Age: 67 Year
  Sex: Female
  Weight: 182.02 kg

DRUGS (7)
  1. PREMARIN [Suspect]
     Active Substance: ESTROGENS, CONJUGATED
     Indication: Hot flush
     Dosage: 0.625 MG, 1X/DAY
     Route: 048
     Dates: start: 2017
  2. PREMARIN [Suspect]
     Active Substance: ESTROGENS, CONJUGATED
     Indication: Hyperhidrosis
     Dosage: 0.9 MG, 1X/DAY (90 DAYS)
     Route: 048
  3. PREMARIN [Suspect]
     Active Substance: ESTROGENS, CONJUGATED
     Indication: Atrophic vulvovaginitis
     Dosage: 0.625 MG, 1X/DAY (90 DAYS)
     Route: 048
  4. PANTOPRAZOLE SODIUM [Concomitant]
     Active Substance: PANTOPRAZOLE SODIUM
     Dosage: 40 MG, 1X/DAY
     Route: 048
  5. DIFLUCAN [Concomitant]
     Active Substance: FLUCONAZOLE
     Dosage: 100 MG, DAILY
     Route: 048
  6. TESSALON [Concomitant]
     Active Substance: BENZONATATE
     Dosage: 100 MG, 3X/DAY (AS NEEDED ORALLY THREE TIMES A DAY)
     Route: 048
  7. METHYLPREDNISOLONE [Concomitant]
     Active Substance: METHYLPREDNISOLONE
     Dosage: 4 MG, DAILY
     Route: 048

REACTIONS (4)
  - COVID-19 [Not Recovered/Not Resolved]
  - Upper respiratory tract infection [Unknown]
  - Dysuria [Unknown]
  - Pollakiuria [Unknown]
